FAERS Safety Report 8591794-2 (Version None)
Quarter: 2012Q3

REPORT INFORMATION
  Report Type: 
  Country: None (occurrence: None)
  Receive Date: 20120814
  Receipt Date: 20120807
  Transmission Date: 20120928
  Serious: Yes (Other)
  Sender: FDA-Public Use
  Company Number: PHHY2009MX33538

PATIENT
  Age: 73 Year
  Sex: Female

DRUGS (6)
  1. DAFLON (DIOSMIN/HESPERIDIN) [Concomitant]
     Indication: CARDIOVASCULAR DISORDER
     Dosage: 2 TABLETS DAILY
     Dates: start: 20120101
  2. RASILEZ [Suspect]
     Indication: HYPERTENSION
     Dosage: 1 DF (300 MG) PER DAY
     Route: 048
     Dates: start: 20080701
  3. MICARDIS HCT [Concomitant]
     Indication: HYPERTENSION
     Dosage: 1 TABLET DAILY
  4. ALDACTONE [Concomitant]
     Dosage: UNK UKN, UNK
  5. BUMETANIDE [Concomitant]
     Indication: DIURETIC THERAPY
     Dosage: 1 TABLET DAILY
     Dates: start: 20100101
  6. AMIODARONE HCL [Concomitant]
     Indication: CARDIAC DISORDER
     Dosage: 1 TABLET DAILY
     Dates: start: 20000101

REACTIONS (13)
  - WEIGHT INCREASED [None]
  - PAIN IN EXTREMITY [None]
  - CONSTIPATION [None]
  - ANXIETY [None]
  - RASH MACULAR [None]
  - GASTROINTESTINAL INFLAMMATION [None]
  - HYPOTENSION [None]
  - BLOOD PRESSURE INCREASED [None]
  - JOINT DISLOCATION [None]
  - REBOUND EFFECT [None]
  - ARTHRALGIA [None]
  - FALL [None]
  - DIZZINESS [None]
